FAERS Safety Report 13236995 (Version 1)
Quarter: 2017Q1

REPORT INFORMATION
  Report Type: Report from Study
  Country: None (occurrence: CO)
  Receive Date: 20170215
  Receipt Date: 20170215
  Transmission Date: 20170428
  Serious: Yes (Death)
  Sender: FDA-Public Use
  Company Number: CO-ABBVIE-17P-036-1874971-00

PATIENT
  Age: 62 Year
  Sex: Female

DRUGS (1)
  1. ZEMPLAR [Suspect]
     Active Substance: PARICALCITOL
     Indication: HYPERPARATHYROIDISM SECONDARY
     Dosage: POST DIALYSIS
     Route: 042
     Dates: start: 20160205, end: 20170130

REACTIONS (7)
  - Nervous system disorder [Fatal]
  - Respiratory failure [Fatal]
  - Intervertebral discitis [Fatal]
  - Haemorrhagic stroke [Fatal]
  - Bacteraemia [Fatal]
  - Cardio-respiratory arrest [Fatal]
  - Aneurysm ruptured [Fatal]

NARRATIVE: CASE EVENT DATE: 20170208
